FAERS Safety Report 7893573-8 (Version None)
Quarter: 2011Q4

REPORT INFORMATION
  Report Type: 
  Country: None (occurrence: None)
  Receive Date: 20111104
  Receipt Date: 20111026
  Transmission Date: 20120403
  Serious: Yes (Death)
  Sender: FDA-Public Use
  Company Number: US-GLAXOSMITHKLINE-A0801185A

PATIENT
  Age: 66 Year
  Sex: Male

DRUGS (3)
  1. AVANDIA [Suspect]
     Indication: DIABETES MELLITUS
     Dosage: 4MG TWICE PER DAY
     Route: 048
     Dates: start: 20050401, end: 20070525
  2. AVANDAMET [Suspect]
     Indication: DIABETES MELLITUS
     Route: 048
     Dates: start: 20040301, end: 20050301
  3. ROSIGLITAZONE MALEATE [Suspect]
     Indication: DIABETES MELLITUS
     Dosage: 4MG TWICE PER DAY
     Route: 048
     Dates: start: 20061101

REACTIONS (5)
  - ACUTE MYOCARDIAL INFARCTION [None]
  - LEFT VENTRICULAR HYPERTROPHY [None]
  - CARDIAC ARREST [None]
  - AORTIC VALVE CALCIFICATION [None]
  - DIASTOLIC DYSFUNCTION [None]
